FAERS Safety Report 5284906-X (Version None)
Quarter: 2007Q2

REPORT INFORMATION
  Report Type: 
  Country: None (occurrence: None)
  Receive Date: 20070403
  Receipt Date: 20070328
  Transmission Date: 20071010
  Serious: Yes (Life-Threatening, Disabling, Other)
  Sender: FDA-Public Use
  Company Number: 2007GB00678

PATIENT
  Age: 56 Year
  Sex: Female
  Weight: 66 kg

DRUGS (2)
  1. ANASTROZOLE [Suspect]
     Route: 048
     Dates: start: 20020201, end: 20070208
  2. LEVOTHYROXINE SODIUM [Concomitant]
     Route: 048
     Dates: start: 20030217

REACTIONS (2)
  - DEPRESSION [None]
  - SUICIDAL IDEATION [None]
